FAERS Safety Report 7385191-5 (Version None)
Quarter: 2011Q1

REPORT INFORMATION
  Report Type: 
  Country: None (occurrence: None)
  Receive Date: 20110330
  Receipt Date: 20110317
  Transmission Date: 20110831
  Serious: Yes (Death)
  Sender: FDA-Public Use
  Company Number: JP-SPECTRUM PHARMACEUTICALS, INC.-11-Z-JP-00025

PATIENT

DRUGS (4)
  1. RITUXIMAB [Suspect]
     Dosage: 250 MG/M2, SINGLE
     Route: 042
     Dates: start: 20100720, end: 20100720
  2. ZEVALIN [Suspect]
     Dosage: UNK, SINGLE
     Route: 042
     Dates: start: 20100713, end: 20100713
  3. ZEVALIN [Suspect]
     Indication: NON-HODGKIN'S LYMPHOMA
     Dosage: UNK, SINGLE
     Route: 042
     Dates: start: 20100720, end: 20100720
  4. RITUXIMAB [Suspect]
     Dosage: 250 MG/M2, SINGLE
     Route: 042
     Dates: start: 20100713, end: 20100713

REACTIONS (1)
  - CARDIAC FAILURE [None]
